FAERS Safety Report 7018201-5 (Version None)
Quarter: 2010Q3

REPORT INFORMATION
  Report Type: 
  Country: None (occurrence: None)
  Receive Date: 20100928
  Receipt Date: 20100916
  Transmission Date: 20110219
  Serious: Yes (Other)
  Sender: FDA-Public Use
  Company Number: US-JNJFOC-20100607507

PATIENT
  Sex: Male
  Weight: 100.7 kg

DRUGS (5)
  1. INVEGA SUSTENNA [Suspect]
     Indication: PRODUCT USED FOR UNKNOWN INDICATION
     Route: 030
  2. ATIVAN [Concomitant]
     Indication: AGGRESSION
  3. HALDOL [Concomitant]
     Indication: PSYCHOTIC DISORDER
  4. INVEGA [Concomitant]
     Indication: BIPOLAR DISORDER
     Route: 048
  5. INVEGA [Concomitant]
     Route: 048

REACTIONS (1)
  - DELIRIUM [None]
